FAERS Safety Report 4380149-2 (Version None)
Quarter: 2004Q2

REPORT INFORMATION
  Report Type: 
  Country: None (occurrence: None)
  Receive Date: 20040614
  Receipt Date: 20040405
  Transmission Date: 20050107
  Serious: No
  Sender: FDA-Public Use
  Company Number: M04-341-107

PATIENT
  Age: 42 Year
  Sex: Female
  Weight: 90 kg

DRUGS (7)
  1. VELCADE [Suspect]
     Indication: MULTIPLE MYELOMA
     Dosage: 1.9MG FOR CYCLE 1: INTRAVENOUS
     Route: 042
  2. ATIVAN [Concomitant]
  3. CELEBREX(CELEXOCIB) [Concomitant]
  4. DEXAMETHASONE [Concomitant]
  5. MS CONTIN [Concomitant]
  6. PREDNISONE [Concomitant]
  7. THALIDOMIDE [Concomitant]

REACTIONS (1)
  - FEELING ABNORMAL [None]
